FAERS Safety Report 21852553 (Version 8)
Quarter: 2023Q4

REPORT INFORMATION
  Report Type: Report from Study
  Country: US (occurrence: US)
  Receive Date: 20230112
  Receipt Date: 20231114
  Transmission Date: 20240109
  Serious: No
  Sender: FDA-Public Use
  Company Number: US-002147023-NVSC2023US005528

PATIENT
  Age: 51 Year
  Sex: Female

DRUGS (3)
  1. KESIMPTA [Suspect]
     Active Substance: OFATUMUMAB
     Indication: Multiple sclerosis
     Dosage: 20 MG
     Route: 065
     Dates: start: 2022
  2. KESIMPTA [Suspect]
     Active Substance: OFATUMUMAB
     Dosage: 20 MG, QW, (20 MG/0.4 ML) WEEK 0, WEEK 1 AND WEEK 2 AS DIRECTED
     Route: 058
     Dates: start: 20230108
  3. EZETIMIBE [Concomitant]
     Active Substance: EZETIMIBE
     Indication: Product used for unknown indication
     Dosage: UNK
     Route: 065

REACTIONS (7)
  - Device malfunction [Unknown]
  - Product supply issue [Recovered/Resolved]
  - Product supply issue [Unknown]
  - Product storage error [Recovered/Resolved]
  - Incorrect dose administered by device [Unknown]
  - Injection site haemorrhage [Unknown]
  - Administration site wound [Unknown]

NARRATIVE: CASE EVENT DATE: 20230108
